FAERS Safety Report 9773934 (Version 1)
Quarter: 2013Q4

REPORT INFORMATION
  Report Type: Spontaneous
  Country: BR (occurrence: BR)
  Receive Date: 20131220
  Receipt Date: 20131220
  Transmission Date: 20140711
  Serious: Yes (Other)
  Sender: FDA-Public Use
  Company Number: BR-JNJFOC-20131209423

PATIENT
  Sex: Female
  Weight: 64 kg

DRUGS (11)
  1. TYLENOL SINUS [Suspect]
     Indication: INFLUENZA
     Route: 048
     Dates: start: 20131211
  2. TYLENOL SINUS [Suspect]
     Indication: INFLUENZA
     Route: 048
     Dates: start: 201311, end: 201311
  3. TYLENOL SINUS [Suspect]
     Indication: HEADACHE
     Route: 048
     Dates: start: 201311, end: 201311
  4. TYLENOL SINUS [Suspect]
     Indication: HEADACHE
     Route: 048
     Dates: start: 20131211
  5. ENALAPRIL [Concomitant]
     Indication: HYPERTENSION
     Route: 048
  6. ATENOLOL [Concomitant]
     Indication: HYPERTENSION
     Route: 048
  7. CYCLOSPORIN [Concomitant]
     Indication: IMMUNOSUPPRESSION
     Route: 048
     Dates: start: 2005
  8. ATORVASTATIN [Concomitant]
     Indication: BLOOD CHOLESTEROL
     Route: 048
     Dates: start: 2005
  9. HYDRALAZINE [Concomitant]
     Indication: HYPERTENSION
     Route: 048
     Dates: start: 2011
  10. SIROLIMUS [Concomitant]
     Indication: IMMUNOSUPPRESSION
     Route: 048
     Dates: start: 201310
  11. GLIBENCLAMIDE [Concomitant]
     Indication: DIABETES MELLITUS
     Route: 048

REACTIONS (5)
  - Local swelling [Recovered/Resolved]
  - Dyspnoea [Recovered/Resolved]
  - Swollen tongue [Recovered/Resolved]
  - Drooling [Recovered/Resolved]
  - Medication error [Unknown]
